FAERS Safety Report 7467806-6 (Version None)
Quarter: 2011Q2

REPORT INFORMATION
  Report Type: 
  Country: None (occurrence: None)
  Receive Date: 20110509
  Receipt Date: 20110106
  Transmission Date: 20111010
  Serious: No
  Sender: FDA-Public Use
  Company Number: US-ALEXION-A201100023

PATIENT
  Sex: Male

DRUGS (3)
  1. AMOXICILLIN [Suspect]
     Dosage: UNK
     Dates: start: 20110102, end: 20110105
  2. CIPRO [Suspect]
     Dosage: UNK
     Dates: start: 20110102, end: 20110105
  3. SOLIRIS [Suspect]
     Indication: PAROXYSMAL NOCTURNAL HAEMOGLOBINURIA
     Dosage: UNK
     Route: 042

REACTIONS (7)
  - DIARRHOEA [None]
  - WHITE BLOOD CELL COUNT ABNORMAL [None]
  - PYREXIA [None]
  - CHEST X-RAY ABNORMAL [None]
  - PAIN [None]
  - CHILLS [None]
  - GASTROENTERITIS VIRAL [None]
